FAERS Safety Report 9796058 (Version 2)
Quarter: 2014Q1

REPORT INFORMATION
  Report Type: Spontaneous
  Country: CN (occurrence: CN)
  Receive Date: 20140103
  Receipt Date: 20140108
  Transmission Date: 20141002
  Serious: Yes (Other)
  Sender: FDA-Public Use
  Company Number: CN-PFIZER INC-2013374205

PATIENT
  Age: 33 Year
  Sex: Male

DRUGS (1)
  1. XALKORI [Suspect]
     Indication: LUNG ADENOCARCINOMA STAGE IV
     Dosage: 1 DF, DAILY
     Route: 048

REACTIONS (2)
  - Accident [Not Recovered/Not Resolved]
  - Ankle fracture [Not Recovered/Not Resolved]
